FAERS Safety Report 4281373-X (Version None)
Quarter: 2004Q1

REPORT INFORMATION
  Report Type: 
  Country: None (occurrence: None)
  Receive Date: 20040109
  Receipt Date: 20030527
  Transmission Date: 20041129
  Serious: No
  Sender: FDA-Public Use
  Company Number: US038503

PATIENT
  Age: 56 Year
  Sex: Female

DRUGS (4)
  1. KINERET [Suspect]
     Indication: RHEUMATOID ARTHRITIS
     Dosage: 100 MG, DAILY, SC
     Route: 058
     Dates: start: 20030501
  2. PREDNISONE [Concomitant]
  3. METHOTREXATE [Concomitant]
  4. CELECOXIB [Concomitant]

REACTIONS (3)
  - CONTUSION [None]
  - INJECTION SITE REACTION [None]
  - RASH ERYTHEMATOUS [None]
